FAERS Safety Report 6678054-1 (Version None)
Quarter: 2010Q2

REPORT INFORMATION
  Report Type: 
  Country: None (occurrence: None)
  Receive Date: 20100412
  Receipt Date: 20100331
  Transmission Date: 20101027
  Serious: Yes (Hospitalization, Other)
  Sender: FDA-Public Use
  Company Number: PHBS2007JP13324

PATIENT
  Age: 23 Year
  Sex: Male
  Weight: 64 kg

DRUGS (25)
  1. CERTICAN [Suspect]
     Indication: HEART TRANSPLANT
     Dosage: 1.5 MG/D
     Route: 048
     Dates: start: 20070514, end: 20070516
  2. CERTICAN [Suspect]
     Dosage: 1.75 MG/D
     Route: 048
     Dates: start: 20070517, end: 20070522
  3. CERTICAN [Suspect]
     Dosage: 2 MG/D
     Route: 048
     Dates: start: 20070523, end: 20070528
  4. CERTICAN [Suspect]
     Dosage: 2.5 MG/D
     Route: 048
     Dates: start: 20070529, end: 20070604
  5. CERTICAN [Suspect]
     Dosage: 2 MG/D
     Route: 048
     Dates: start: 20070605, end: 20070611
  6. CERTICAN [Suspect]
     Dosage: 1.5 MG/D
     Route: 048
     Dates: start: 20070612, end: 20070703
  7. CERTICAN [Suspect]
     Dosage: 2 MG/D
     Route: 048
     Dates: start: 20070704
  8. PROGRAF [Suspect]
     Indication: HEART TRANSPLANT
     Dosage: 5.7 MG, DAILY
  9. BUFFERIN [Concomitant]
  10. NORVASC [Concomitant]
  11. SLOW-K [Concomitant]
  12. PRAVASTATIN [Concomitant]
  13. OMEPRAL [Concomitant]
  14. JUVELA [Concomitant]
  15. ENALAPRIL MALEATE [Concomitant]
  16. COTRIM [Concomitant]
  17. ALENDRONATE SODIUM [Concomitant]
  18. DOGMATYL [Concomitant]
  19. POLARAMINE [Concomitant]
  20. TRANILAST [Concomitant]
  21. ZADITEN [Concomitant]
  22. MYCOPHENOLATE MOFETIL [Concomitant]
  23. RENIVACE [Concomitant]
     Indication: HYPERTENSION
     Dosage: 10 MG
     Route: 048
     Dates: start: 20070514
  24. MAINTATE [Concomitant]
     Indication: HYPERTENSION
     Dosage: 5 MG
     Route: 048
     Dates: start: 20070514
  25. MEVALOTIN [Concomitant]
     Indication: HYPERLIPIDAEMIA
     Dosage: 20 MG
     Route: 048
     Dates: start: 20070514

REACTIONS (11)
  - APHTHOUS STOMATITIS [None]
  - CONCOMITANT DISEASE AGGRAVATED [None]
  - COUGH [None]
  - DIARRHOEA INFECTIOUS [None]
  - EATING DISORDER [None]
  - IMMUNOSUPPRESSANT DRUG LEVEL INCREASED [None]
  - PAIN [None]
  - PYREXIA [None]
  - STOMATITIS [None]
  - UPPER RESPIRATORY TRACT INFLAMMATION [None]
  - VIRAL INFECTION [None]
